FAERS Safety Report 15238982 (Version 1)
Quarter: 2018Q3

REPORT INFORMATION
  Report Type: Spontaneous
  Country: US (occurrence: US)
  Receive Date: 20180803
  Receipt Date: 20180803
  Transmission Date: 20181010
  Serious: No
  Sender: FDA-Public Use
  Company Number: US-ENDO PHARMACEUTICALS INC-2017-001701

PATIENT
  Sex: Female
  Weight: 77.11 kg

DRUGS (3)
  1. PANTOPRAZOLE [Concomitant]
     Active Substance: PANTOPRAZOLE
     Indication: GASTROOESOPHAGEAL REFLUX DISEASE
  2. PREDNISONE TABLETS [Suspect]
     Active Substance: PREDNISONE
     Indication: ARTHRALGIA
     Dosage: UNK UNK, UNKNOWN
     Route: 048
     Dates: end: 201703
  3. XELJANZ [Concomitant]
     Active Substance: TOFACITINIB CITRATE
     Indication: RHEUMATOID ARTHRITIS

REACTIONS (1)
  - Drug ineffective [Not Recovered/Not Resolved]
